FAERS Safety Report 21379108 (Version 2)
Quarter: 2024Q3

REPORT INFORMATION
  Report Type: Report from Study
  Country: BR (occurrence: BR)
  Receive Date: 20220927
  Receipt Date: 20240925
  Transmission Date: 20241017
  Serious: Yes (Other)
  Sender: NOVARTIS
  Company Number: BR-NOVARTISPH-NVSC2022BR020693

PATIENT
  Age: 60 Year
  Sex: Male

DRUGS (3)
  1. COSENTYX [Suspect]
     Active Substance: SECUKINUMAB
     Indication: Psoriatic arthropathy
     Dosage: 300 MG (INJECTION NOS)
     Route: 050
     Dates: start: 20200325
  2. COSENTYX [Suspect]
     Active Substance: SECUKINUMAB
     Dosage: 2 DOSAGE FORM (INJECTION NOS)
     Route: 050
  3. COSENTYX [Suspect]
     Active Substance: SECUKINUMAB
     Dosage: 2 DOSAGE FORM, OTHER (2 PENS EVERY 15TH)
     Route: 065

REACTIONS (14)
  - Retinal detachment [Unknown]
  - Spinal fracture [Unknown]
  - Visual impairment [Unknown]
  - Bone lesion [Recovering/Resolving]
  - Fall [Not Recovered/Not Resolved]
  - Balance disorder [Unknown]
  - Gait inability [Recovered/Resolved]
  - Stress [Unknown]
  - Psoriasis [Recovering/Resolving]
  - Movement disorder [Not Recovered/Not Resolved]
  - Musculoskeletal discomfort [Unknown]
  - Contusion [Not Recovered/Not Resolved]
  - Gait inability [Recovering/Resolving]
  - Inappropriate schedule of product administration [Unknown]

NARRATIVE: CASE EVENT DATE: 20200613
